FAERS Safety Report 19211179 (Version 1)
Quarter: 2021Q2

REPORT INFORMATION
  Report Type: Spontaneous
  Country: GB (occurrence: GB)
  Receive Date: 20210504
  Receipt Date: 20210504
  Transmission Date: 20210717
  Serious: Yes (Hospitalization, Other)
  Sender: FDA-Public Use
  Company Number: GB-TORRENT-00025527

PATIENT
  Age: 6 Year
  Sex: Female

DRUGS (2)
  1. MONTELUKAST [Suspect]
     Active Substance: MONTELUKAST SODIUM
     Indication: ASTHMA
     Dosage: 5 MILLIGRAM DAILY
     Route: 048
  2. OLANZAPINE. [Suspect]
     Active Substance: OLANZAPINE
     Indication: PRODUCT USED FOR UNKNOWN INDICATION
     Dosage: 5MG ONE TAKEN ON 25?NOV?2020 ORALLY BY ACCIDENT.
     Route: 048
     Dates: start: 20201125

REACTIONS (7)
  - Wrong product administered [Unknown]
  - Seizure [Recovered/Resolved]
  - Stress urinary incontinence [Unknown]
  - Product dispensing error [Unknown]
  - Blood pressure decreased [Recovered/Resolved]
  - Product packaging confusion [Unknown]
  - Electrocardiogram abnormal [Recovered/Resolved]

NARRATIVE: CASE EVENT DATE: 202011
